FAERS Safety Report 6293040-1 (Version None)
Quarter: 2009Q3

REPORT INFORMATION
  Report Type: 
  Country: None (occurrence: None)
  Receive Date: 20090729
  Receipt Date: 20090716
  Transmission Date: 20100115
  Serious: Yes (Congenital Anomaly)
  Sender: FDA-Public Use
  Company Number: 2009-198638-NL

PATIENT
  Sex: Female

DRUGS (1)
  1. NUVARING [Suspect]
     Dosage: DF, TRANSPLACENTAL
     Route: 064
     Dates: start: 20081018

REACTIONS (7)
  - BREECH PRESENTATION [None]
  - CAESAREAN SECTION [None]
  - KIDNEY MALFORMATION [None]
  - MATERNAL DRUGS AFFECTING FOETUS [None]
  - OLIGOHYDRAMNIOS [None]
  - RENAL HYPOPLASIA [None]
  - SOLITARY KIDNEY [None]
